FAERS Safety Report 20429933 (Version 2)
Quarter: 2022Q2

REPORT INFORMATION
  Report Type: Spontaneous
  Country: AR (occurrence: AR)
  Receive Date: 20220204
  Receipt Date: 20220413
  Transmission Date: 20220720
  Serious: No
  Sender: FDA-Public Use
  Company Number: AR-PFIZER INC-202200148288

PATIENT
  Age: 8 Year
  Sex: Male

DRUGS (1)
  1. GENOTROPIN [Suspect]
     Active Substance: SOMATROPIN
     Indication: Foetal growth restriction
     Dosage: 1 TO 1.4 MG, 7 TIMES A WEEK
     Dates: start: 20201219

REACTIONS (5)
  - Malaise [Unknown]
  - COVID-19 [Unknown]
  - Device occlusion [Unknown]
  - Device difficult to use [Unknown]
  - Poor quality device used [Unknown]
